FAERS Safety Report 9344637 (Version 1)
Quarter: 2013Q2

REPORT INFORMATION
  Report Type: Spontaneous
  Country: US (occurrence: None)
  Receive Date: 20130611
  Receipt Date: 20130611
  Transmission Date: 20140414
  Serious: No
  Sender: FDA-Public Use
  Company Number: None

PATIENT
  Age: 62 Year
  Sex: Male

DRUGS (2)
  1. PEGASYS [Suspect]
     Indication: HEPATITIS C
     Route: 058
     Dates: start: 20130425, end: 20130607
  2. PEGASYS [Suspect]
     Indication: COMA HEPATIC
     Route: 058
     Dates: start: 20130425, end: 20130607

REACTIONS (1)
  - Depression [None]
